FAERS Safety Report 4728946-5 (Version None)
Quarter: 2005Q3

REPORT INFORMATION
  Report Type: 
  Country: None (occurrence: None)
  Receive Date: 20050729
  Receipt Date: 20050531
  Transmission Date: 20060218
  Serious: No
  Sender: FDA-Public Use
  Company Number: US-GLAXOSMITHKLINE-A0560596A

PATIENT
  Age: 44 Year
  Sex: Female

DRUGS (9)
  1. IMITREX [Suspect]
     Indication: NEURALGIA
     Dosage: 100MG AS REQUIRED
     Route: 048
  2. AMERGE [Concomitant]
  3. EFFEXOR [Concomitant]
  4. VICOPROFEN [Concomitant]
  5. ADIPEX-P [Concomitant]
  6. VITAMIN B COMPLEX CAP [Concomitant]
  7. MULTI-VITAMIN [Concomitant]
  8. HYDROXYZINE [Concomitant]
  9. VALIUM [Concomitant]

REACTIONS (4)
  - DRUG INEFFECTIVE [None]
  - MENTAL IMPAIRMENT [None]
  - NAUSEA [None]
  - STOMACH DISCOMFORT [None]
